FAERS Safety Report 8220766-2 (Version None)
Quarter: 2012Q1

REPORT INFORMATION
  Report Type: 
  Country: None (occurrence: None)
  Receive Date: 20120320
  Receipt Date: 20120315
  Transmission Date: 20120608
  Serious: Yes (Other)
  Sender: FDA-Public Use
  Company Number: BR-SANOFI-AVENTIS-2012SA018150

PATIENT
  Age: 77 Year
  Sex: Male
  Weight: 74 kg

DRUGS (8)
  1. DAFLON [Concomitant]
     Route: 048
     Dates: start: 20100101
  2. VITAMIN B COMPLEX CAP [Concomitant]
     Indication: VITAMIN SUPPLEMENTATION
     Route: 048
     Dates: start: 19820101
  3. AUTOPEN 24 [Suspect]
     Indication: DEVICE THERAPY
  4. WARFARIN SODIUM [Concomitant]
     Indication: ANTICOAGULANT THERAPY
     Dosage: 1/4 TABLET DAILY
     Route: 048
     Dates: start: 20060101
  5. LANTUS [Suspect]
     Route: 058
     Dates: start: 20020101
  6. MULTIVITAMIN [Concomitant]
     Route: 048
     Dates: start: 20110101
  7. HUMALOG [Concomitant]
     Dosage: DOSE: ACCORDING TO GLYCEMIA
     Route: 048
     Dates: start: 20080101
  8. SERTRALINE HYDROCHLORIDE [Concomitant]
     Indication: ANTIDEPRESSANT THERAPY
     Route: 048
     Dates: start: 20070101

REACTIONS (2)
  - BLINDNESS [None]
  - GLAUCOMA [None]
